FAERS Safety Report 4343713-2 (Version None)
Quarter: 2004Q2

REPORT INFORMATION
  Report Type: 
  Country: None (occurrence: None)
  Receive Date: 20040421
  Receipt Date: 20040421
  Transmission Date: 20050107
  Serious: Yes (Hospitalization)
  Sender: FDA-Public Use
  Company Number: None

PATIENT
  Age: 80 Year
  Sex: Female
  Weight: 72 kg

DRUGS (7)
  1. HEPARIN [Suspect]
     Indication: CHEST PAIN
     Dosage: 30 UNITS/KG
     Dates: end: 20040301
  2. HEPARIN [Suspect]
     Indication: STENT PLACEMENT
     Dosage: 30 UNITS/KG
     Dates: end: 20040301
  3. XYLOCAINE [Concomitant]
  4. INTEGRILIN [Concomitant]
  5. NITROGLYCERINE DRIP [Concomitant]
  6. ATROPINE [Concomitant]
  7. DOPAMINE HCL [Concomitant]

REACTIONS (1)
  - DRUG INEFFECTIVE [None]
